FAERS Safety Report 10861220 (Version 4)
Quarter: 2015Q3

REPORT INFORMATION
  Report Type: Spontaneous
  Country: GB (occurrence: GB)
  Receive Date: 20150224
  Receipt Date: 20150826
  Transmission Date: 20151125
  Serious: Yes (Death, Hospitalization)
  Sender: FDA-Public Use
  Company Number: GB-TEVA-541374ACC

PATIENT
  Age: 58 Year
  Sex: Male
  Weight: 100 kg

DRUGS (8)
  1. AMLODIPINE BESILATE [Suspect]
     Active Substance: AMLODIPINE BESYLATE
     Indication: HYPERTENSION
     Dosage: 5 MILLIGRAM DAILY; 5 MG, 1X/DAY
     Dates: start: 20140922
  2. IMMUNOGLOBULIN [Concomitant]
     Active Substance: HUMAN IMMUNOGLOBULIN G
     Indication: MULTIFOCAL MOTOR NEUROPATHY
     Dates: start: 20141117, end: 20141121
  3. BECONASE AQ [Concomitant]
     Active Substance: BECLOMETHASONE DIPROPIONATE MONOHYDRATE
     Indication: INFLUENZA LIKE ILLNESS
  4. BECONASE AQ [Concomitant]
     Active Substance: BECLOMETHASONE DIPROPIONATE MONOHYDRATE
     Indication: CATARRH
  5. DOXAZOSIN [Suspect]
     Active Substance: DOXAZOSIN\DOXAZOSIN MESYLATE
     Dosage: 16 MILLIGRAM DAILY; 8 MG UNK, UNK
  6. DOXAZOSIN [Suspect]
     Active Substance: DOXAZOSIN\DOXAZOSIN MESYLATE
     Indication: HYPERTENSION
     Dosage: 8 MILLIGRAM DAILY; 4 MG, 2X/DAY
     Dates: start: 2002
  7. LISINOPRIL. [Suspect]
     Active Substance: LISINOPRIL
     Indication: HYPERTENSION
     Dosage: 20 MILLIGRAM DAILY; 20 MG, 1X/DAY
     Dates: start: 2002, end: 20141126
  8. BECONASE AQ [Concomitant]
     Active Substance: BECLOMETHASONE DIPROPIONATE MONOHYDRATE
     Indication: DYSPNOEA
     Dosage: UNK
     Dates: start: 201405

REACTIONS (10)
  - Coronary artery disease [Fatal]
  - Cardiac failure acute [Unknown]
  - Hyponatraemia [Unknown]
  - Gait disturbance [Unknown]
  - Dysarthria [Unknown]
  - Blood urine present [Unknown]
  - Muscle spasms [Unknown]
  - Hypokalaemia [Unknown]
  - Anaemia [Unknown]
  - Confusional state [Unknown]

NARRATIVE: CASE EVENT DATE: 20141124
